FAERS Safety Report 16771434 (Version 1)
Quarter: 2019Q3

REPORT INFORMATION
  Report Type: Spontaneous
  Country: GB (occurrence: GB)
  Receive Date: 20190904
  Receipt Date: 20190904
  Transmission Date: 20191005
  Serious: Yes (Hospitalization)
  Sender: FDA-Public Use
  Company Number: GB-TEVA-2019-GB-1099718

PATIENT
  Sex: Female

DRUGS (13)
  1. GLICLAZIDE [Suspect]
     Active Substance: GLICLAZIDE
     Dosage: 320 MG
     Route: 048
  2. PARACETAMOL [Concomitant]
     Active Substance: ACETAMINOPHEN
  3. ATENOLOL. [Suspect]
     Active Substance: ATENOLOL
     Dosage: 50 MILLIGRAM
     Route: 048
  4. ADCAL-D3 [Concomitant]
     Active Substance: CALCIUM CARBONATE\CHOLECALCIFEROL
  5. CELECOXIB. [Concomitant]
     Active Substance: CELECOXIB
  6. LETROZOLE. [Concomitant]
     Active Substance: LETROZOLE
  7. DOCUSATE [Concomitant]
     Active Substance: DOCUSATE
  8. ATORVASTATIN [Concomitant]
     Active Substance: ATORVASTATIN
  9. LERCANIDIPINE [Concomitant]
     Active Substance: LERCANIDIPINE
  10. AMITRIPTYLINE [Concomitant]
     Active Substance: AMITRIPTYLINE
  11. LANSOPRAZOLE. [Concomitant]
     Active Substance: LANSOPRAZOLE
  12. CARBOCISTEINE [Concomitant]
     Active Substance: CARBOCYSTEINE
  13. GABAPENTIN. [Concomitant]
     Active Substance: GABAPENTIN

REACTIONS (1)
  - Hypoglycaemia [Recovered/Resolved]
